FAERS Safety Report 8590401 (Version 2)
Quarter: 2012Q4

REPORT INFORMATION
  Report Type: Report from Study
  Country: FR (occurrence: FR)
  Receive Date: 20120601
  Receipt Date: 20120904
  Transmission Date: 20130627
  Serious: Yes (Death, Life-Threatening, Hospitalization, Other)
  Sender: FDA-Public Use
  Company Number: PHHY2012FR046452

PATIENT
  Age: 45 Year
  Sex: Male
  Weight: 71.5 kg

DRUGS (9)
  1. EVEROLIMUS [Suspect]
     Indication: RENAL CELL CARCINOMA
     Dosage: UNK
     Route: 048
     Dates: start: 20111021, end: 20111105
  2. SOLUPRED [Concomitant]
  3. INIPOMP [Concomitant]
  4. DIFFU K [Concomitant]
  5. CACIT D3 [Concomitant]
  6. GAVISCON [Concomitant]
  7. PRIMPERAN [Concomitant]
  8. XANAX [Concomitant]
  9. IMOVANE [Concomitant]

REACTIONS (15)
  - Neoplasm progression [Fatal]
  - Malignant neoplasm progression [Fatal]
  - Metastases to central nervous system [Fatal]
  - General physical health deterioration [Unknown]
  - Hypercalcaemia [Unknown]
  - Hemiparesis [Unknown]
  - Abdominal pain [Unknown]
  - Nausea [Unknown]
  - Vomiting [Unknown]
  - Renal failure [Unknown]
  - Weight decreased [Unknown]
  - Asthenia [Unknown]
  - Hypocalcaemia [Unknown]
  - Decreased appetite [Unknown]
  - Constipation [Unknown]
